FAERS Safety Report 5206290-X (Version None)
Quarter: 2006Q4

REPORT INFORMATION
  Report Type: 
  Country: None (occurrence: None)
  Receive Date: 20061031
  Receipt Date: 20060822
  Transmission Date: 20070319
  Serious: No
  Sender: FDA-Public Use
  Company Number: 2006-BP-09800BP

PATIENT

DRUGS (2)
  1. APTIVUS/RITONAVIR CAPSULES (ALL OTHER THERAPEUTIC PRODUCTS) [Suspect]
     Dosage: SEE TEXT, 250 MG/100 MG
  2. FUZEON (ENFVIRTIDE) [Concomitant]

REACTIONS (1)
  - DRY SKIN [None]
